FAERS Safety Report 5289006-0 (Version None)
Quarter: 2007Q2

REPORT INFORMATION
  Report Type: 
  Country: None (occurrence: None)
  Receive Date: 20070405
  Receipt Date: 20070328
  Transmission Date: 20071010
  Serious: Yes (Hospitalization)
  Sender: FDA-Public Use
  Company Number: FR-PFIZER INC-2007020693

PATIENT
  Age: 88 Year
  Sex: Female

DRUGS (11)
  1. ALDACTONE [Suspect]
     Indication: HYPERTENSIVE CARDIOMYOPATHY
     Route: 048
  2. LASIX [Interacting]
     Indication: HYPERTENSIVE CARDIOMYOPATHY
     Route: 048
  3. STAGID [Concomitant]
     Indication: DIABETES MELLITUS
     Dosage: TEXT:3 DF-FREQ:DAILY
     Route: 048
  4. AMLOR [Concomitant]
     Indication: HYPERTENSIVE CARDIOMYOPATHY
     Dosage: DAILY DOSE:5MG-FREQ:DAILY
     Route: 048
  5. FOZITEC [Concomitant]
     Indication: HYPERTENSIVE CARDIOMYOPATHY
     Dosage: DAILY DOSE:10MG-FREQ:DAILY
     Route: 048
  6. INSULATARD [Concomitant]
     Indication: DIABETES MELLITUS
     Route: 058
  7. PARIET 10 [Concomitant]
     Dosage: FREQ:1 PER DAY
     Route: 048
  8. PREVISCAN [Concomitant]
     Dosage: FREQ:3/4 PER DAY
     Route: 048
  9. STILNOX [Concomitant]
     Route: 048
  10. DIGOXIN [Concomitant]
     Dosage: FREQ:1 PER DAY
     Route: 048
  11. DIAMICRON [Concomitant]
     Dosage: FREQ:2 PER DAY
     Route: 048

REACTIONS (3)
  - ASTHENIA [None]
  - DRUG INTERACTION [None]
  - HYPONATRAEMIA [None]
